FAERS Safety Report 24765380 (Version 1)
Quarter: 2024Q4

REPORT INFORMATION
  Report Type: Spontaneous
  Country: GB (occurrence: GB)
  Receive Date: 20241223
  Receipt Date: 20241223
  Transmission Date: 20250115
  Serious: Yes (Other)
  Sender: GLAXOSMITHKLINE
  Company Number: None

PATIENT

DRUGS (5)
  1. FLUTICASONE PROPIONATE [Suspect]
     Active Substance: FLUTICASONE PROPIONATE
     Indication: Ill-defined disorder
     Dosage: 2 DF, BID (INHALE 2 DOSES TWICE DAILY VIA MDI AND AEROCHAMBER)
     Route: 055
     Dates: start: 20241122
  2. BECLOMETHASONE DIPROPIONATE [Concomitant]
     Active Substance: BECLOMETHASONE DIPROPIONATE
     Indication: Ill-defined disorder
     Dosage: 2 PUFF(S), BID (TWO PUFFS TWICE DAILY)
     Route: 065
     Dates: start: 20240531
  3. Cetraben [Concomitant]
     Indication: Ill-defined disorder
     Dosage: APPLY AS REGULARLY AS POSSIBLE
     Route: 065
     Dates: start: 20220204
  4. EPIPEN [Concomitant]
     Active Substance: EPINEPHRINE
     Indication: Ill-defined disorder
     Dosage: TO ADMINISTER IN EVENT OF ANAPHYLAXSIS
     Route: 065
     Dates: start: 20230901
  5. ALBUTEROL [Concomitant]
     Active Substance: ALBUTEROL
     Indication: Ill-defined disorder
     Dosage: 2 DF (INHALE 2 DOSES AS NEEDED)
     Route: 055
     Dates: start: 20240531

REACTIONS (1)
  - Sleep terror [Recovered/Resolved]
